FAERS Safety Report 8154387-7 (Version None)
Quarter: 2012Q1

REPORT INFORMATION
  Report Type: 
  Country: None (occurrence: None)
  Receive Date: 20120103
  Receipt Date: 20111108
  Transmission Date: 20120608
  Serious: No
  Sender: FDA-Public Use
  Company Number: AE-2011-000913

PATIENT
  Age: 59 Year
  Sex: Male
  Weight: 90.7194 kg

DRUGS (7)
  1. LEXAPRO [Concomitant]
  2. PEGASYS [Concomitant]
  3. METOPROLOL TARTRATE [Concomitant]
  4. INCIVEK [Suspect]
     Dosage: 2250 MG (750 MG, 1 IN 8 HR)
     Dates: start: 20110808
  5. LEVOTHYROXINE SODIUM [Concomitant]
  6. RIBAVIRIN [Concomitant]
  7. BENAZEPRIL HYDROCHLORIDE [Concomitant]

REACTIONS (2)
  - NAUSEA [None]
  - INFLUENZA LIKE ILLNESS [None]
